FAERS Safety Report 4315174-0 (Version None)
Quarter: 2004Q1

REPORT INFORMATION
  Report Type: 
  Country: None (occurrence: None)
  Receive Date: 20040310
  Receipt Date: 20040224
  Transmission Date: 20041129
  Serious: Yes (Hospitalization)
  Sender: FDA-Public Use
  Company Number: US-JNJFOC-20040205912

PATIENT
  Age: 70 Year
  Sex: Female

DRUGS (18)
  1. INFLIXIMAB (INFLIXIMAB, RECOMBINANT) LYOPHILIZED POWDER [Suspect]
     Indication: RHEUMATOID ARTHRITIS
     Dosage: INTRAVENOUS
     Route: 042
     Dates: start: 20001218
  2. ALPRAZOLAM [Concomitant]
  3. ANTIVERT [Concomitant]
  4. CALCIUM (CALCIUM) [Concomitant]
  5. DESIPRAMINE HCL [Concomitant]
  6. FOLIC ACID [Concomitant]
  7. FOSAMAX [Concomitant]
  8. LANOXIN [Concomitant]
  9. LASIX [Concomitant]
  10. MULTIVITAMIN (MULTIVITAMINS) [Concomitant]
  11. NEURONTIN [Concomitant]
  12. PREDNISONE [Concomitant]
  13. RYTHMOL [Concomitant]
  14. SYNTHROID [Concomitant]
  15. METHOTREXATE [Concomitant]
  16. MYSOLINE [Concomitant]
  17. VITAMIN C (ASCORBIC ACID) [Concomitant]
  18. VITAMIN E [Concomitant]

REACTIONS (3)
  - FALL [None]
  - PNEUMONIA [None]
  - SPINAL COMPRESSION FRACTURE [None]
